FAERS Safety Report 10373619 (Version 1)
Quarter: 2014Q3

REPORT INFORMATION
  Report Type: Spontaneous
  Country: KR (occurrence: KR)
  Receive Date: 20140808
  Receipt Date: 20140808
  Transmission Date: 20150326
  Serious: Yes (Other)
  Sender: FDA-Public Use
  Company Number: PHHY2014KR096472

PATIENT
  Age: 77 Year
  Sex: Female

DRUGS (12)
  1. NICERGOLINE [Concomitant]
     Active Substance: NICERGOLINE
     Indication: DYSLIPIDAEMIA
  2. AMLODIPINE [Concomitant]
     Active Substance: AMLODIPINE BESYLATE
     Dosage: 2.5 MG, UNK
  3. CLOPIDOGREL [Concomitant]
     Active Substance: CLOPIDOGREL BISULFATE
     Dosage: 75 MG, UNK
  4. METFORMIN [Suspect]
     Active Substance: METFORMIN HYDROCHLORIDE
     Dosage: 500 MG, UNK
  5. CALCIUM CARBONATE. [Concomitant]
     Active Substance: CALCIUM CARBONATE
     Dosage: 500 MG, UNK
  6. PRAVASTATIN SODIUM. [Concomitant]
     Active Substance: PRAVASTATIN SODIUM
     Dosage: 20 MG, UNK
  7. HERBAL NOS [Interacting]
     Active Substance: HERBALS
     Indication: INSOMNIA
     Route: 048
  8. HERBAL NOS [Interacting]
     Active Substance: HERBALS
     Indication: PALPITATIONS
  9. DONEPEZIL HCL [Concomitant]
     Active Substance: DONEPEZIL HYDROCHLORIDE
     Dosage: 5 MG, UNK
  10. NICERGOLINE [Concomitant]
     Active Substance: NICERGOLINE
     Indication: HYPERTENSION
     Dosage: 60 MG, UNK
  11. HERBAL NOS [Interacting]
     Active Substance: HERBALS
     Indication: DIARRHOEA
  12. NICERGOLINE [Concomitant]
     Active Substance: NICERGOLINE
     Indication: DIABETES MELLITUS

REACTIONS (5)
  - Palpitations [Unknown]
  - Insomnia [Unknown]
  - Hypokalaemia [Unknown]
  - Drug interaction [Unknown]
  - Diarrhoea [Unknown]
